FAERS Safety Report 10706436 (Version 2)
Quarter: 2015Q1

REPORT INFORMATION
  Report Type: Report from Study
  Country: US (occurrence: US)
  Receive Date: 20150113
  Receipt Date: 20150113
  Transmission Date: 20150721
  Serious: Yes (Other)
  Sender: FDA-Public Use
  Company Number: US-THROMBOGENICS NV-SPO-2014-1412

PATIENT
  Age: 66 Year
  Sex: Female

DRUGS (1)
  1. JETREA [Suspect]
     Active Substance: OCRIPLASMIN
     Indication: VITREOUS ADHESIONS
     Dosage: 0.125 MG, ONE TIME DOSE
     Route: 031
     Dates: start: 20140903, end: 20140903

REACTIONS (11)
  - Subretinal fluid [Unknown]
  - Treatment failure [Unknown]
  - Vitreous floaters [Unknown]
  - Retinal injury [Not Recovered/Not Resolved]
  - Vision blurred [Unknown]
  - Macular hole [Not Recovered/Not Resolved]
  - Disease progression [Unknown]
  - Disease progression [Not Recovered/Not Resolved]
  - Photopsia [Unknown]
  - Metamorphopsia [Unknown]
  - Visual acuity reduced [Not Recovered/Not Resolved]

NARRATIVE: CASE EVENT DATE: 20140903
